FAERS Safety Report 10152554 (Version 1)
Quarter: 2014Q2

REPORT INFORMATION
  Report Type: Spontaneous
  Country: US (occurrence: US)
  Receive Date: 20140505
  Receipt Date: 20140505
  Transmission Date: 20141212
  Serious: No
  Sender: FDA-Public Use
  Company Number: US-ASTRAZENECA-2013SE79083

PATIENT
  Age: 85 Year
  Sex: Female
  Weight: 55.3 kg

DRUGS (3)
  1. SYMBICORT [Suspect]
     Indication: ASTHMA
     Dosage: 160/4.5 MCG 2 PUFFS BID
     Route: 055
     Dates: start: 20131025, end: 20131025
  2. SYMBICORT [Suspect]
     Indication: ASTHMA
     Dosage: 2 PUFFS BID
     Route: 055
  3. OMEPRAZOLE [Suspect]
     Indication: GASTRIC DISORDER
     Route: 048

REACTIONS (3)
  - Memory impairment [Unknown]
  - Asthma [Not Recovered/Not Resolved]
  - Drug dose omission [Not Recovered/Not Resolved]
